FAERS Safety Report 21691163 (Version 1)
Quarter: 2022Q4

REPORT INFORMATION
  Report Type: Spontaneous
  Country: US (occurrence: US)
  Receive Date: 20221207
  Receipt Date: 20221207
  Transmission Date: 20230113
  Serious: No
  Sender: FDA-Public Use
  Company Number: US-SA-SAC20221202000307

PATIENT
  Age: 34 Year
  Sex: Female
  Weight: 104 kg

DRUGS (7)
  1. CERDELGA [Suspect]
     Active Substance: ELIGLUSTAT
     Dosage: 84 MG, BID
     Route: 048
     Dates: start: 20211021
  2. CARVEDILOL [Suspect]
     Active Substance: CARVEDILOL
  3. MELOXICAM [Suspect]
     Active Substance: MELOXICAM
  4. BACLOFEN [Suspect]
     Active Substance: BACLOFEN
  5. GABAPENTIN [Suspect]
     Active Substance: GABAPENTIN
  6. PHENTERMINE [Concomitant]
     Active Substance: PHENTERMINE
  7. LOESTRIN NOS [Concomitant]
     Active Substance: ETHINYL ESTRADIOL\NORETHINDRONE ACETATE

REACTIONS (2)
  - Somnolence [Unknown]
  - Fatigue [Unknown]

NARRATIVE: CASE EVENT DATE: 20220101
